FAERS Safety Report 12095707 (Version 3)
Quarter: 2016Q1

REPORT INFORMATION
  Report Type: Spontaneous
  Country: GB (occurrence: GB)
  Receive Date: 20160220
  Receipt Date: 20160317
  Transmission Date: 20160526
  Serious: Yes (Other)
  Sender: FDA-Public Use
  Company Number: GB-AMGEN-GBRSP2015140152

PATIENT
  Age: 49 Year
  Sex: Female

DRUGS (6)
  1. ENBREL [Suspect]
     Active Substance: ETANERCEPT
     Dosage: 25 MG, UNK
     Route: 065
     Dates: start: 2016
  2. ENBREL [Suspect]
     Active Substance: ETANERCEPT
     Dosage: 50 MG, CYCLIC (EVERY 10 DAYS)
     Route: 058
     Dates: end: 20160127
  3. METOJECT [Concomitant]
     Active Substance: METHOTREXATE SODIUM
     Dosage: 50 MG, WEEKLY
  4. METOJECT [Concomitant]
     Active Substance: METHOTREXATE SODIUM
     Dosage: 10 UNK, UNK
  5. ENBREL [Suspect]
     Active Substance: ETANERCEPT
     Indication: JUVENILE IDIOPATHIC ARTHRITIS
     Dosage: 50 MG, WEEKLY
     Route: 058
     Dates: start: 20151216
  6. METOJECT [Concomitant]
     Active Substance: METHOTREXATE SODIUM
     Dosage: 10 MG,EVERY 10 DAYS

REACTIONS (14)
  - Product use issue [Unknown]
  - Suicidal ideation [Not Recovered/Not Resolved]
  - Headache [Unknown]
  - Premenstrual syndrome [Unknown]
  - Agitation [Not Recovered/Not Resolved]
  - Mood swings [Not Recovered/Not Resolved]
  - Fatigue [Unknown]
  - Tearfulness [Not Recovered/Not Resolved]
  - Fine motor skill dysfunction [Unknown]
  - Malaise [Unknown]
  - Nasopharyngitis [Unknown]
  - Abdominal pain upper [Unknown]
  - Anger [Not Recovered/Not Resolved]
  - Depression [Not Recovered/Not Resolved]

NARRATIVE: CASE EVENT DATE: 201512
